FAERS Safety Report 20010340 (Version 3)
Quarter: 2022Q2

REPORT INFORMATION
  Report Type: Spontaneous
  Country: FR (occurrence: FR)
  Receive Date: 20211028
  Receipt Date: 20220624
  Transmission Date: 20220720
  Serious: Yes (Death)
  Sender: FDA-Public Use
  Company Number: None

PATIENT
  Age: 62 Year
  Sex: Female

DRUGS (11)
  1. OLANZAPINE [Suspect]
     Active Substance: OLANZAPINE
     Indication: Product used for unknown indication
     Dosage: UNKNOWN
     Route: 065
     Dates: end: 202001
  2. ALCOHOL [Suspect]
     Active Substance: ALCOHOL
     Indication: Product used for unknown indication
     Dosage: UNK (UNKNOWN)
     Route: 065
     Dates: end: 202001
  3. ZOPICLONE [Suspect]
     Active Substance: ZOPICLONE
     Indication: Product used for unknown indication
     Dosage: UNKNOWN
     Route: 065
     Dates: end: 202001
  4. DIAZEPAM [Suspect]
     Active Substance: DIAZEPAM
     Indication: Product used for unknown indication
     Dosage: UNKNOWN
     Route: 065
     Dates: end: 202001
  5. COCAINE [Suspect]
     Active Substance: COCAINE
     Indication: Product used for unknown indication
     Dosage: UNK (UNKNOWN)
     Route: 065
     Dates: end: 202001
  6. HEROIN [Suspect]
     Active Substance: DIAMORPHINE
     Indication: Product used for unknown indication
     Dosage: UNK (UNKNOWN)
     Route: 065
     Dates: end: 202001
  7. METHADONE HYDROCHLORIDE [Suspect]
     Active Substance: METHADONE HYDROCHLORIDE
     Indication: Product substitution
     Dosage: UNK (UNKNOWN)
     Route: 065
     Dates: end: 202001
  8. METHADONE HYDROCHLORIDE [Suspect]
     Active Substance: METHADONE HYDROCHLORIDE
     Dosage: UNK
     Route: 065
     Dates: end: 202001
  9. AMYLOCAINE HYDROCHLORIDE [Suspect]
     Active Substance: AMYLOCAINE HYDROCHLORIDE
     Indication: Product substitution
     Dosage: UNK
     Route: 065
     Dates: end: 202001
  10. MIDOMAFETAMINE [Suspect]
     Active Substance: MIDOMAFETAMINE
     Indication: Product used for unknown indication
     Dosage: UNK
     Route: 065
     Dates: end: 202001
  11. BENZYL ALCOHOL [Suspect]
     Active Substance: BENZYL ALCOHOL
     Indication: Product used for unknown indication
     Dosage: UNK
     Route: 065
     Dates: end: 202001

REACTIONS (2)
  - Sudden death [Fatal]
  - Drug abuse [Fatal]

NARRATIVE: CASE EVENT DATE: 20200101
